FAERS Safety Report 4635310-6 (Version None)
Quarter: 2005Q2

REPORT INFORMATION
  Report Type: 
  Country: None (occurrence: None)
  Receive Date: 20050411
  Receipt Date: 20050401
  Transmission Date: 20051028
  Serious: Yes (Hospitalization)
  Sender: FDA-Public Use
  Company Number: KII-2005-0015778

PATIENT
  Age: 48 Year
  Sex: Male

DRUGS (7)
  1. HYDROMORPHONE HCL [Suspect]
     Indication: PAIN
  2. ACETAMINOPHEN AND HYDROCODONE BITARTRATE [Suspect]
     Indication: BACK PAIN
     Dosage: SEE TEXT, ORAL
     Route: 048
  3. FENTANYL [Concomitant]
  4. SSRI [Concomitant]
  5. AMOXICILLIN [Concomitant]
  6. PROTON PUMP INHIBITOR [Concomitant]
  7. BENZODIAZEPINE DERIVATIVES [Concomitant]

REACTIONS (8)
  - ALANINE AMINOTRANSFERASE INCREASED [None]
  - ANOREXIA [None]
  - ASPARTATE AMINOTRANSFERASE INCREASED [None]
  - INTERNATIONAL NORMALISED RATIO INCREASED [None]
  - LIPASE INCREASED [None]
  - MULTIPLE DRUG OVERDOSE [None]
  - NAUSEA [None]
  - PROTHROMBIN TIME PROLONGED [None]
